FAERS Safety Report 7494918-3 (Version None)
Quarter: 2011Q2

REPORT INFORMATION
  Report Type: 
  Country: None (occurrence: None)
  Receive Date: 20110520
  Receipt Date: 20110516
  Transmission Date: 20111010
  Serious: Yes (Death)
  Sender: FDA-Public Use
  Company Number: CA-ASTRAZENECA-2011SE29084

PATIENT
  Sex: Male

DRUGS (3)
  1. OPIATES [Concomitant]
  2. COCAINE [Concomitant]
  3. SEROQUEL XR [Suspect]
     Route: 048

REACTIONS (2)
  - SUDDEN DEATH [None]
  - CARDIAC ARREST [None]
